FAERS Safety Report 9928368 (Version 1)
Quarter: 2014Q1

REPORT INFORMATION
  Report Type: Report from Study
  Country: US (occurrence: US)
  Receive Date: 20140227
  Receipt Date: 20140227
  Transmission Date: 20141002
  Serious: Yes (Other)
  Sender: FDA-Public Use
  Company Number: US-ABBVIE-14P-163-1205274-00

PATIENT
  Sex: Male
  Weight: 95.34 kg

DRUGS (3)
  1. HUMIRA [Suspect]
     Indication: PSORIASIS
     Route: 058
     Dates: start: 2013, end: 2013
  2. METOPROLOL SUCCINATE [Concomitant]
     Indication: HYPERTENSION
  3. LOSARTAN [Concomitant]
     Indication: HYPERTENSION

REACTIONS (4)
  - Feeling abnormal [Recovered/Resolved]
  - Skin infection [Recovered/Resolved]
  - Staphylococcal infection [Recovered/Resolved]
  - Rash macular [Not Recovered/Not Resolved]
